FAERS Safety Report 23730045 (Version 1)
Quarter: 2024Q2

REPORT INFORMATION
  Report Type: Spontaneous
  Country: US (occurrence: US)
  Receive Date: 20240411
  Receipt Date: 20240411
  Transmission Date: 20240716
  Serious: Yes (Hospitalization, Other)
  Sender: FDA-Public Use
  Company Number: US-SPECGX-T202300441

PATIENT

DRUGS (2)
  1. METHADONE [Suspect]
     Active Substance: METHADONE HYDROCHLORIDE
     Indication: Drug use disorder
     Dosage: 20 MILLIGRAM, QD (INITIATION DOSE)
     Route: 065
  2. METHADONE [Suspect]
     Active Substance: METHADONE HYDROCHLORIDE
     Dosage: 100 MILLIGRAM, QD (DISCHARGE DOSE)
     Route: 065

REACTIONS (5)
  - Endocarditis [Unknown]
  - Drug use disorder [Unknown]
  - Surgery [Unknown]
  - Electrocardiogram QT prolonged [Unknown]
  - Drug dependence [Unknown]
